FAERS Safety Report 5076532-2 (Version None)
Quarter: 2006Q3

REPORT INFORMATION
  Report Type: 
  Country: None (occurrence: None)
  Receive Date: 20060810
  Receipt Date: 20060717
  Transmission Date: 20061208
  Serious: Yes (Hospitalization)
  Sender: FDA-Public Use
  Company Number: AU-ABBOTT-06P-008-0338579-00

PATIENT
  Sex: Male

DRUGS (3)
  1. KALETRA [Suspect]
     Indication: HIV INFECTION
     Dosage: 533.3/133.3 MG
     Route: 048
     Dates: start: 20050513
  2. CEPHALEXIN MONOHYDRATE [Concomitant]
     Indication: DRUG USE FOR UNKNOWN INDICATION
     Route: 048
     Dates: start: 20000323
  3. LOPERAMIDE HYDROCHLORIDE [Concomitant]
     Indication: GASTROENTERITIS
     Route: 048
     Dates: start: 20060703

REACTIONS (1)
  - EMBOLIC STROKE [None]
